FAERS Safety Report 7329257-4 (Version None)
Quarter: 2011Q1

REPORT INFORMATION
  Report Type: 
  Country: None (occurrence: None)
  Receive Date: 20110303
  Receipt Date: 20110225
  Transmission Date: 20110831
  Serious: Yes (Hospitalization)
  Sender: FDA-Public Use
  Company Number: A0916368A

PATIENT
  Sex: Male
  Weight: 12 kg

DRUGS (2)
  1. NASONEX [Concomitant]
     Dosage: 1PUFF PER DAY
     Route: 045
     Dates: start: 20110210
  2. AMOXICILLIN AND CLAVULANATE POTASSIUM [Suspect]
     Indication: ILL-DEFINED DISORDER
     Dosage: 2.5ML TWICE PER DAY
     Route: 048
     Dates: start: 20110210, end: 20110219

REACTIONS (3)
  - PNEUMONIA [None]
  - PYREXIA [None]
  - DRUG INEFFECTIVE [None]
